FAERS Safety Report 7627181-0 (Version None)
Quarter: 2011Q3

REPORT INFORMATION
  Report Type: 
  Country: None (occurrence: None)
  Receive Date: 20110721
  Receipt Date: 20110708
  Transmission Date: 20111222
  Serious: Yes (Hospitalization, Other)
  Sender: FDA-Public Use
  Company Number: US-CELGENEUS-163-21880-11053192

PATIENT
  Sex: Male

DRUGS (11)
  1. COUMADIN [Concomitant]
     Dosage: 2 MILLIGRAM
     Route: 048
  2. DOCUSATE SODIUM [Concomitant]
     Dosage: 250 MILLIGRAM
     Route: 048
  3. NORCO [Concomitant]
     Dosage: 7.5 MG-325MG
     Route: 048
  4. REVLIMID [Suspect]
     Dosage: 5 MILLIGRAM
     Route: 048
     Dates: start: 20110617
  5. REVLIMID [Suspect]
     Dosage: 5 MILLIGRAM
     Route: 048
     Dates: start: 20110301, end: 20110101
  6. ACETAMINOPHEN AND HYDROCODONE BITARTRATE [Concomitant]
     Indication: PAIN
     Dosage: 325MG-10MG
     Route: 048
  7. FAMOTIDINE [Concomitant]
     Dosage: 20 MILLIGRAM
     Route: 048
  8. AMIODARONE HCL [Concomitant]
     Dosage: 300 MILLIGRAM
     Route: 048
  9. GABAPENTIN [Concomitant]
     Dosage: 300 MILLIGRAM
     Route: 048
  10. LEVOTHROID [Concomitant]
     Dosage: 112 MICROGRAM
     Route: 048
  11. REVLIMID [Suspect]
     Dosage: 10 MILLIGRAM
     Route: 048
     Dates: start: 20110227, end: 20110101

REACTIONS (4)
  - FALL [None]
  - CONTUSION [None]
  - HUMERUS FRACTURE [None]
  - PULMONARY EMBOLISM [None]
